FAERS Safety Report 8852281 (Version 5)
Quarter: 2013Q2

REPORT INFORMATION
  Report Type: Spontaneous
  Country: CA (occurrence: CA)
  Receive Date: 20121022
  Receipt Date: 20130416
  Transmission Date: 20140414
  Serious: Yes (Death)
  Sender: FDA-Public Use
  Company Number: CA-B.I. PHARMACEUTICALS,INC./RIDGEFIELD-2012-BP-25992BP

PATIENT
  Age: 53 Year
  Sex: Male

DRUGS (1)
  1. MIRAPEX [Suspect]
     Indication: PARKINSON^S DISEASE
     Dates: start: 20000911, end: 20040303

REACTIONS (8)
  - Death [Fatal]
  - Pathological gambling [Not Recovered/Not Resolved]
  - Hypersexuality [Unknown]
  - Paranoia [Unknown]
  - Obsessive-compulsive disorder [Unknown]
  - Psychotic disorder [Unknown]
  - Sleep disorder [Unknown]
  - Personality change [Unknown]
